FAERS Safety Report 10065553 (Version 1)
Quarter: 2014Q2

REPORT INFORMATION
  Report Type: Spontaneous
  Country: US (occurrence: US)
  Receive Date: 20140408
  Receipt Date: 20140408
  Transmission Date: 20141212
  Serious: No
  Sender: FDA-Public Use
  Company Number: US-BAYER-2014-052163

PATIENT
  Age: 81 Year
  Sex: Female
  Weight: 54.42 kg

DRUGS (2)
  1. ALEVE TABLET [Suspect]
     Indication: BACK PAIN
     Dosage: 2 DF, PRN
     Route: 048
     Dates: start: 201402
  2. CENTRUM SILVER [Concomitant]

REACTIONS (1)
  - Drug ineffective [None]
